FAERS Safety Report 23286317 (Version 2)
Quarter: 2023Q4

REPORT INFORMATION
  Report Type: Spontaneous
  Country: US (occurrence: US)
  Receive Date: 20231212
  Receipt Date: 20231212
  Transmission Date: 20240109
  Serious: Yes (Death, Other)
  Sender: FDA-Public Use
  Company Number: US-ALKEM LABORATORIES LIMITED-US-ALKEM-2023-15235

PATIENT
  Sex: Male

DRUGS (2)
  1. EVEROLIMUS [Suspect]
     Active Substance: EVEROLIMUS
     Indication: Dedifferentiated liposarcoma
     Dosage: 2.5 MILLIGRAM, QD
     Route: 048
  2. RIBOCICLIB [Suspect]
     Active Substance: RIBOCICLIB
     Indication: Dedifferentiated liposarcoma
     Dosage: 300 MILLIGRAM (21/28 DAYS)
     Route: 048

REACTIONS (3)
  - Acute myocardial infarction [Fatal]
  - Coronary artery disease [Fatal]
  - Mucosal inflammation [Unknown]
